FAERS Safety Report 8874580 (Version 1)
Quarter: 2012Q4

REPORT INFORMATION
  Report Type: 
  Country: NO (occurrence: NO)
  Receive Date: 20121030
  Receipt Date: 20121030
  Transmission Date: 20130627
  Serious: Yes (Hospitalization)
  Sender: FDA-Public Use
  Company Number: NO-B.I. PHARMACEUTICALS,INC./RIDGEFIELD-2012-SW-00798NO

PATIENT
  Age: 72 Year
  Sex: Male

DRUGS (1)
  1. PRADAXA [Suspect]
     Indication: THROMBOSIS PROPHYLAXIS
     Dosage: 150 mg
     Route: 048
     Dates: start: 201201, end: 201210

REACTIONS (2)
  - Pulmonary embolism [Not Recovered/Not Resolved]
  - Drug ineffective [Not Recovered/Not Resolved]
